FAERS Safety Report 5897607-1 (Version None)
Quarter: 2008Q3

REPORT INFORMATION
  Report Type: 
  Country: None (occurrence: None)
  Receive Date: 20080925
  Receipt Date: 20080919
  Transmission Date: 20090109
  Serious: Yes (Death)
  Sender: FDA-Public Use
  Company Number: US-SANOFI-SYNTHELABO-F01200801478

PATIENT
  Sex: Female
  Weight: 67.6 kg

DRUGS (9)
  1. LISINOPRIL [Concomitant]
     Dosage: 5 MG
     Route: 048
  2. METHOTREXATE [Concomitant]
     Dosage: 15 MG
     Route: 048
  3. NEURONTIN [Concomitant]
     Dosage: 300 MG
     Route: 048
  4. FOLIC ACID [Concomitant]
     Dosage: 2 MG
     Route: 048
  5. LIPITOR [Concomitant]
     Dosage: 40 MG
     Route: 048
  6. VERIFYNOW ASSAY [Suspect]
     Indication: PLATELET AGGREGATION
     Dosage: UNK
     Route: 065
     Dates: start: 20080702, end: 20080702
  7. PLAVIX [Suspect]
     Indication: ANTIPLATELET THERAPY
     Dosage: 75 MG
     Route: 048
  8. PLAVIX [Suspect]
     Dosage: LOADING DOSE 6 DF
     Route: 048
     Dates: start: 20080702, end: 20080702
  9. PLAVIX [Suspect]
     Dosage: 75 MG OR 150 MG DAILY
     Route: 048

REACTIONS (1)
  - DEATH [None]
